FAERS Safety Report 5081369-4 (Version None)
Quarter: 2006Q3

REPORT INFORMATION
  Report Type: 
  Country: None (occurrence: None)
  Receive Date: 20060814
  Receipt Date: 20060814
  Transmission Date: 20061208
  Serious: Yes (Hospitalization, Disabling, Other)
  Sender: FDA-Public Use
  Company Number: None

PATIENT
  Age: 47 Year
  Sex: Female
  Weight: 57.6068 kg

DRUGS (1)
  1. DEPAKOTE [Suspect]
     Indication: EPILEPSY
     Dosage: APPROXIMATELY 1 YEAR

REACTIONS (10)
  - ALOPECIA [None]
  - AMNESIA [None]
  - BONE DISORDER [None]
  - CONDITION AGGRAVATED [None]
  - CONVULSION [None]
  - HEART RATE IRREGULAR [None]
  - MUSCULOSKELETAL CHEST PAIN [None]
  - NERVOUSNESS [None]
  - TOOTH LOSS [None]
  - WEIGHT INCREASED [None]
